FAERS Safety Report 19994441 (Version 2)
Quarter: 2022Q2

REPORT INFORMATION
  Report Type: Spontaneous
  Country: CL (occurrence: CL)
  Receive Date: 20211025
  Receipt Date: 20220624
  Transmission Date: 20220721
  Serious: Yes (Other)
  Sender: FDA-Public Use
  Company Number: CL-VIIV HEALTHCARE ULC-CL2021AMR216251

PATIENT

DRUGS (1)
  1. TRIUMEQ [Suspect]
     Active Substance: ABACAVIR SULFATE\DOLUTEGRAVIR SODIUM\LAMIVUDINE
     Indication: HIV infection
     Dosage: UNK

REACTIONS (2)
  - Thrombotic thrombocytopenic purpura [Unknown]
  - Microangiopathy [Unknown]
